FAERS Safety Report 8225324-1 (Version None)
Quarter: 2012Q1

REPORT INFORMATION
  Report Type: 
  Country: None (occurrence: None)
  Receive Date: 20120321
  Receipt Date: 20120315
  Transmission Date: 20120608
  Serious: Yes (Other)
  Sender: FDA-Public Use
  Company Number: US-GLAXOSMITHKLINE-A0970433A

PATIENT
  Age: 50 Year
  Sex: Male

DRUGS (8)
  1. OXYCODONE HCL [Concomitant]
  2. VOTRIENT [Suspect]
     Indication: RENAL CANCER
     Dosage: 800MG PER DAY
     Route: 048
     Dates: start: 20111001, end: 20120301
  3. LEXAPRO [Concomitant]
  4. COMBIVENT [Concomitant]
  5. MEGESTROL ACETATE [Concomitant]
  6. XANAX [Concomitant]
  7. NORVASC [Concomitant]
  8. FISH OIL [Concomitant]

REACTIONS (2)
  - NEOPLASM MALIGNANT [None]
  - METASTASES TO CENTRAL NERVOUS SYSTEM [None]
